FAERS Safety Report 9535305 (Version 1)
Quarter: 2013Q3

REPORT INFORMATION
  Report Type: Spontaneous
  Country: US (occurrence: US)
  Receive Date: 20130918
  Receipt Date: 20130918
  Transmission Date: 20140515
  Serious: No
  Sender: FDA-Public Use
  Company Number: US-PURDUE-USA-2012-0089175

PATIENT
  Age: 42 Year
  Sex: Female

DRUGS (1)
  1. INTERMEZZO [Suspect]
     Indication: INSOMNIA

REACTIONS (3)
  - Wrong technique in drug usage process [Unknown]
  - Somnolence [Recovered/Resolved]
  - Fatigue [Recovered/Resolved]
